FAERS Safety Report 18846220 (Version 4)
Quarter: 2021Q2

REPORT INFORMATION
  Report Type: Report from Study
  Country: CA (occurrence: CA)
  Receive Date: 20210204
  Receipt Date: 20210616
  Transmission Date: 20210717
  Serious: Yes (Other)
  Sender: FDA-Public Use
  Company Number: CA-MYLANLABS-2021M1006690

PATIENT
  Age: 19 Year
  Sex: Male

DRUGS (1)
  1. EPIPEN [Suspect]
     Active Substance: EPINEPHRINE
     Indication: FOOD ALLERGY
     Dosage: 0.3 MILLIGRAM
     Route: 065
     Dates: start: 20210126, end: 20210126

REACTIONS (5)
  - Injury associated with device [Unknown]
  - Device failure [Recovered/Resolved]
  - Needle issue [Unknown]
  - Product complaint [Unknown]
  - Device use issue [Unknown]

NARRATIVE: CASE EVENT DATE: 20210126
